FAERS Safety Report 15117729 (Version 2)
Quarter: 2018Q3

REPORT INFORMATION
  Report Type: Report from Study
  Country: JP (occurrence: JP)
  Receive Date: 20180707
  Receipt Date: 20180720
  Transmission Date: 20181010
  Serious: Yes (Other)
  Sender: FDA-Public Use
  Company Number: JP-AMGEN-JPNSP2018091287

PATIENT
  Age: 82 Year
  Sex: Female

DRUGS (16)
  1. DARBEPOETIN ALFA [Suspect]
     Active Substance: DARBEPOETIN ALFA
     Dosage: 240 MUG, QWK
     Route: 058
     Dates: start: 201803
  2. ENALAPRIL MALEATE. [Concomitant]
     Active Substance: ENALAPRIL MALEATE
     Dosage: 5 MG, QD
     Route: 048
     Dates: start: 20180523
  3. MIYA?BM [Concomitant]
     Active Substance: CLOSTRIDIUM BUTYRICUM SPORES STRAIN M-55
     Dosage: 1 DF, TID (IN THE MORNING, NOON AND EVENING)
     Route: 048
  4. TEICOPLANIN [Concomitant]
     Active Substance: TEICOPLANIN
     Dosage: 200 MG, UNK
     Route: 041
     Dates: start: 20180621
  5. CARBON [Concomitant]
     Active Substance: ACTIVATED CHARCOAL
     Dosage: 2 G, TID (IN THE MORNING, NOON AND EVENING)
     Route: 048
     Dates: start: 20180523
  6. ARGAMATE [Concomitant]
     Active Substance: CALCIUM POLYSTYRENE SULFONATE
     Dosage: 25 G, BID (AFTER BREAKFAST AND DINNER)
     Route: 048
  7. PILSICAINIDE HYDROCHLORIDE [Concomitant]
     Active Substance: PILSICAINIDE HYDROCHLORIDE
     Dosage: 50 MG, BID (AFTER BREAKFAST AND DINNER)
     Route: 048
     Dates: start: 20180523
  8. MONTELUKAST [Concomitant]
     Active Substance: MONTELUKAST SODIUM
     Dosage: 10 MG, QD
     Route: 048
     Dates: start: 20180523
  9. CEFEPIME [Concomitant]
     Active Substance: CEFEPIME HYDROCHLORIDE
     Dosage: 0.5 G
     Route: 040
     Dates: start: 20180619, end: 20180621
  10. REVLIMID [Concomitant]
     Active Substance: LENALIDOMIDE
     Dosage: UNK UNK, QD
     Route: 048
     Dates: start: 20180524, end: 201806
  11. MUCOSOLATE L [Concomitant]
     Dosage: 45 MG, QD
     Route: 048
     Dates: start: 20180523
  12. DARBEPOETIN ALFA [Suspect]
     Active Substance: DARBEPOETIN ALFA
     Indication: MYELODYSPLASTIC SYNDROME
     Dosage: 240 MUG, Q2WK
     Route: 058
     Dates: start: 20171222
  13. AMLODIPINE [Concomitant]
     Active Substance: AMLODIPINE BESYLATE
     Dosage: UNK UNK, QD (AFTER BREAKFAST)
     Route: 048
     Dates: start: 20180523
  14. MEROPENEM. [Concomitant]
     Active Substance: MEROPENEM
     Dosage: 0.25 MG, UNK
     Route: 041
     Dates: start: 20180621
  15. LENALIDOMIDE [Concomitant]
     Active Substance: LENALIDOMIDE
     Dosage: UNK
     Route: 048
  16. MAGMITT [Concomitant]
     Active Substance: MAGNESIUM OXIDE
     Dosage: 330 MG, BID (AFTER BREAKFAST AND DINNER)
     Route: 048
     Dates: start: 20180523

REACTIONS (4)
  - Pneumonia [Recovered/Resolved]
  - Diarrhoea [Recovered/Resolved]
  - Pyrexia [Recovered/Resolved]
  - Decreased appetite [Recovered/Resolved]

NARRATIVE: CASE EVENT DATE: 20180620
